FAERS Safety Report 4413539-X (Version None)
Quarter: 2004Q3

REPORT INFORMATION
  Report Type: 
  Country: None (occurrence: None)
  Receive Date: 20040728
  Receipt Date: 20040712
  Transmission Date: 20050211
  Serious: Yes (Hospitalization, Other)
  Sender: FDA-Public Use
  Company Number: USA040670600

PATIENT
  Age: 14 Year
  Sex: Male
  Weight: 68 kg

DRUGS (5)
  1. STRATTERA [Suspect]
     Indication: ATTENTION DEFICIT/HYPERACTIVITY DISORDER
     Dosage: 10 MG DAY
     Dates: start: 20040601
  2. MINOCIN (MNOCYCLINE HYDROCHLORIDE) [Concomitant]
  3. LEXAPRO [Concomitant]
  4. RISPERDAL [Concomitant]
  5. PREVACID [Concomitant]

REACTIONS (2)
  - CONTUSION [None]
  - THROMBOCYTOPENIA [None]
